FAERS Safety Report 25301416 (Version 1)
Quarter: 2025Q2

REPORT INFORMATION
  Report Type: Spontaneous
  Country: US (occurrence: None)
  Receive Date: 20250511
  Receipt Date: 20250511
  Transmission Date: 20250717
  Serious: Yes (Disabling)
  Sender: FDA-CTU
  Company Number: None

PATIENT
  Age: 38 Year
  Sex: Female
  Weight: 63 kg

DRUGS (6)
  1. DUPIXENT [Suspect]
     Active Substance: DUPILUMAB
     Indication: Eosinophilic oesophagitis
     Dates: start: 20250308, end: 20250419
  2. INSULIN LISPRO [Concomitant]
     Active Substance: INSULIN LISPRO
  3. LEVOTHYROXINE [Concomitant]
     Active Substance: LEVOTHYROXINE
  4. Dexcom CGM [Concomitant]
  5. OmniPod Insulin Delivery System [Concomitant]
  6. IBSRELA [Concomitant]
     Active Substance: TENAPANOR HYDROCHLORIDE

REACTIONS (2)
  - Drug hypersensitivity [None]
  - Vitiligo [None]

NARRATIVE: CASE EVENT DATE: 20250430
